FAERS Safety Report 20059322 (Version 2)
Quarter: 2022Q1

REPORT INFORMATION
  Report Type: Report from Study
  Country: FR (occurrence: FR)
  Receive Date: 20211111
  Receipt Date: 20220309
  Transmission Date: 20220424
  Serious: Yes (Hospitalization, Other)
  Sender: FDA-Public Use
  Company Number: FR-SERVIER-S21012300

PATIENT

DRUGS (18)
  1. PEGASPARGASE [Suspect]
     Active Substance: PEGASPARGASE
     Indication: Acute lymphocytic leukaemia
     Dosage: 1225 IU, D12
     Route: 042
     Dates: start: 20210906, end: 20210906
  2. PEGASPARGASE [Suspect]
     Active Substance: PEGASPARGASE
     Dosage: UNK, D15, D43
     Route: 065
     Dates: start: 20211022, end: 20211022
  3. VINCRISTINE [Suspect]
     Active Substance: VINCRISTINE
     Indication: Acute lymphocytic leukaemia
     Dosage: 0.7 MG, D8, D15, D22
     Route: 042
     Dates: start: 20210902
  4. VINCRISTINE [Suspect]
     Active Substance: VINCRISTINE
     Dosage: 0.7 MG, D15, D22, D43
     Route: 042
     Dates: start: 20211022, end: 20211122
  5. DAUNORUBICIN [Suspect]
     Active Substance: DAUNORUBICIN
     Indication: Acute lymphocytic leukaemia
     Dosage: 15 MG, D8, D15, D22
     Route: 042
     Dates: start: 20210902
  6. METHOTREXATE [Suspect]
     Active Substance: METHOTREXATE
     Indication: Acute lymphocytic leukaemia
     Dosage: 8 MG, D13, D24
     Route: 037
     Dates: start: 20210907, end: 20210920
  7. METHOTREXATE [Suspect]
     Active Substance: METHOTREXATE
     Dosage: 10 MG, D3, D31
     Route: 037
     Dates: start: 20211011, end: 20211109
  8. HYDROCORTISONE [Suspect]
     Active Substance: HYDROCORTISONE
     Indication: Acute lymphocytic leukaemia
     Dosage: 10 MG, D13, D24
     Route: 037
     Dates: start: 20210907, end: 20210920
  9. HYDROCORTISONE [Suspect]
     Active Substance: HYDROCORTISONE
     Dosage: 12.5 MG, D3, D31
     Route: 037
     Dates: start: 20211011, end: 20211109
  10. CYTARABINE [Suspect]
     Active Substance: CYTARABINE
     Indication: Acute lymphocytic leukaemia
     Dosage: 20 MG, D13, D24
     Route: 037
     Dates: start: 20210907, end: 20210920
  11. CYTARABINE [Suspect]
     Active Substance: CYTARABINE
     Dosage: 25 MG, D3, D31
     Route: 037
     Dates: start: 20211011, end: 20211109
  12. CYTARABINE [Suspect]
     Active Substance: CYTARABINE
     Dosage: 37.5 MG, D3 TO D6, D10 TO D13, D31 TO UNSPECIFIED DATE
     Route: 042
     Dates: start: 20211110, end: 20211120
  13. CYCLOPHOSPHAMIDE [Suspect]
     Active Substance: CYCLOPHOSPHAMIDE
     Indication: Acute lymphocytic leukaemia
     Dosage: 500 MG, D1, D29
     Route: 048
     Dates: start: 20211008, end: 20211108
  14. MERCAPTOPURINE [Suspect]
     Active Substance: MERCAPTOPURINE
     Indication: Acute lymphocytic leukaemia
     Dosage: 32 MG, D1 TO D14, D29 TO D42)
     Route: 048
     Dates: start: 20211008, end: 20211121
  15. BACTRIM [Concomitant]
     Active Substance: SULFAMETHOXAZOLE\TRIMETHOPRIM
     Indication: Antifungal prophylaxis
     Dosage: 5 ML
     Route: 048
     Dates: start: 20210827
  16. TN UNSPECIFIED [Concomitant]
     Indication: Product used for unknown indication
     Dosage: UNK
     Route: 065
  17. TN UNSPECIFIED [Concomitant]
     Indication: Product used for unknown indication
     Dosage: UNK
     Route: 065
  18. TN UNSPECIFIED [Concomitant]
     Indication: Product used for unknown indication
     Dosage: 2.5 ML
     Route: 048

REACTIONS (3)
  - Febrile bone marrow aplasia [Recovered/Resolved]
  - Staphylococcal sepsis [Recovered/Resolved]
  - Febrile bone marrow aplasia [Recovered/Resolved]

NARRATIVE: CASE EVENT DATE: 20210909
